FAERS Safety Report 9912685 (Version 1)
Quarter: 2014Q1

REPORT INFORMATION
  Report Type: Spontaneous
  Country: US (occurrence: None)
  Receive Date: 20140218
  Receipt Date: 20140218
  Transmission Date: 20141002
  Serious: No
  Sender: FDA-Public Use
  Company Number: None

PATIENT
  Age: 95 Year
  Sex: Female
  Weight: 56.7 kg

DRUGS (14)
  1. EYLEA 2 MG-0.05ML- REGNERON [Suspect]
     Indication: AGE-RELATED MACULAR DEGENERATION
     Dosage: 2 MG/0.05 ML
     Route: 047
     Dates: start: 20140211, end: 20140211
  2. SYNTHROID [Concomitant]
  3. ATORVASTATIN [Concomitant]
  4. LANTOPROST [Concomitant]
  5. ALPHAGHAN [Concomitant]
  6. LUMIGAN [Concomitant]
  7. ZINC [Concomitant]
  8. MAGNESIUM [Concomitant]
  9. CENTRUM SILVER [Concomitant]
  10. CALCIUM WITH VITAMIN D3 [Concomitant]
  11. VITAMIN B12 [Concomitant]
  12. LUTEIN [Concomitant]
  13. AEAXANTHIN [Concomitant]
  14. POTASSIUM/GLUCONATE [Concomitant]

REACTIONS (3)
  - Flat anterior chamber of eye [None]
  - Vitreous disorder [None]
  - Inflammation [None]
